FAERS Safety Report 13303130 (Version 1)
Quarter: 2017Q1

REPORT INFORMATION
  Report Type: Spontaneous
  Country: US (occurrence: US)
  Receive Date: 20170307
  Receipt Date: 20170307
  Transmission Date: 20170428
  Serious: Yes (Other)
  Sender: FDA-Public Use
  Company Number: US-ALLERGAN-1707801US

PATIENT
  Age: 39 Year
  Sex: Female

DRUGS (1)
  1. LOESTRIN 1.5/30 21 DAY [Suspect]
     Active Substance: ETHINYL ESTRADIOL\NORETHINDRONE ACETATE
     Indication: CONTRACEPTION
     Dosage: UNK
     Route: 065
     Dates: start: 20160430

REACTIONS (9)
  - Facial paralysis [Unknown]
  - Hypertension [Unknown]
  - Partner stress [None]
  - Cerebrovascular accident [Unknown]
  - Psychomotor skills impaired [Unknown]
  - Speech disorder [Unknown]
  - Thrombosis [Unknown]
  - Pain [Unknown]
  - Emotional distress [Unknown]

NARRATIVE: CASE EVENT DATE: 201605
